FAERS Safety Report 17441400 (Version 3)
Quarter: 2020Q3

REPORT INFORMATION
  Report Type: Spontaneous
  Country: JP (occurrence: JP)
  Receive Date: 20200220
  Receipt Date: 20200701
  Transmission Date: 20201102
  Serious: Yes (Other)
  Sender: FDA-Public Use
  Company Number: JP-SA-2020SA038595

PATIENT

DRUGS (1)
  1. OXALIPLATIN. [Suspect]
     Active Substance: OXALIPLATIN
     Indication: COLON CANCER
     Dosage: UNK
     Route: 042

REACTIONS (5)
  - Stomal varices [Unknown]
  - Intestinal haemorrhage [Unknown]
  - Venoocclusive liver disease [Unknown]
  - Bleeding varicose vein [Unknown]
  - Portal hypertension [Unknown]
